FAERS Safety Report 11807439 (Version 1)
Quarter: 2015Q4

REPORT INFORMATION
  Report Type: Spontaneous
  Country: SE (occurrence: SE)
  Receive Date: 20151207
  Receipt Date: 20151207
  Transmission Date: 20160305
  Serious: Yes (Death, Other)
  Sender: FDA-Public Use
  Company Number: SE-FRESENIUS KABI-FK201506338

PATIENT
  Age: 5 Year
  Sex: Female

DRUGS (3)
  1. VALPROATE [Suspect]
     Active Substance: VALPROIC ACID
     Indication: EPILEPSY
  2. VALPROATE [Suspect]
     Active Substance: VALPROIC ACID
     Indication: MUSCLE SPASMS
     Route: 065
  3. IBUPROFEN. [Suspect]
     Active Substance: IBUPROFEN
     Indication: PYREXIA
     Route: 065

REACTIONS (4)
  - Brain oedema [Fatal]
  - Product use issue [Unknown]
  - Hepatic failure [Fatal]
  - Hyperammonaemia [Fatal]
